FAERS Safety Report 24228701 (Version 2)
Quarter: 2024Q3

REPORT INFORMATION
  Report Type: Spontaneous
  Country: FR (occurrence: FR)
  Receive Date: 20240820
  Receipt Date: 20240915
  Transmission Date: 20241017
  Serious: Yes (Hospitalization)
  Sender: DENTSPLY
  Company Number: FR-DENTSPLY-2024SCDP000238

PATIENT
  Age: 73 Year
  Sex: Female
  Weight: 46 kg

DRUGS (3)
  1. MEPIVACAINE HYDROCHLORIDE [Suspect]
     Active Substance: MEPIVACAINE HYDROCHLORIDE
     Indication: Nerve block
     Dosage: UNK DOSE OF CARBOCAINE SOLUTION FOR INJECTION (PDF)
     Route: 065
     Dates: start: 20240723
  2. ROPIVACAINE HYDROCHLORIDE [Suspect]
     Active Substance: ROPIVACAINE HYDROCHLORIDE
     Indication: Nerve block
     Dosage: UNK (BDF)
     Route: 065
     Dates: start: 20240723
  3. DIPRIVAN [Suspect]
     Active Substance: ISOPROPYL ALCOHOL\PROPOFOL
     Indication: Agitation
     Dosage: 50 MILLIGRAM (BDF)
     Route: 065
     Dates: start: 20240723

REACTIONS (2)
  - Toxicity to various agents [None]
  - Off label use [Unknown]

NARRATIVE: CASE EVENT DATE: 20240723
